FAERS Safety Report 8320089-7 (Version None)
Quarter: 2012Q2

REPORT INFORMATION
  Report Type: 
  Country: None (occurrence: None)
  Receive Date: 20120429
  Receipt Date: 20120419
  Transmission Date: 20120825
  Serious: Yes (Hospitalization)
  Sender: FDA-Public Use
  Company Number: JP-VERTEX PHARMACEUTICALS INC.-AE-2012-005901

PATIENT
  Age: 64 Year
  Sex: Female

DRUGS (7)
  1. RIBAVIRIN [Concomitant]
     Indication: HEPATITIS C
     Route: 048
     Dates: start: 20120306, end: 20120325
  2. PEGINTERFERON [Concomitant]
     Indication: HEPATITIS C
     Route: 058
     Dates: start: 20120306
  3. TELAVIC (TELAPREVIR) [Suspect]
     Indication: HEPATITIS C
     Route: 048
     Dates: start: 20120306
  4. URSO 250 [Concomitant]
     Route: 048
     Dates: end: 20120330
  5. RIBAVIRIN [Concomitant]
     Route: 048
     Dates: start: 20120326
  6. NEO-MINOPHAGEN C [Concomitant]
  7. URSO 250 [Concomitant]
     Route: 048
     Dates: start: 20120331

REACTIONS (1)
  - DECREASED APPETITE [None]
